FAERS Safety Report 19074419 (Version 1)
Quarter: 2021Q1

REPORT INFORMATION
  Report Type: Spontaneous
  Country: US (occurrence: US)
  Receive Date: 20210330
  Receipt Date: 20210330
  Transmission Date: 20210420
  Serious: No
  Sender: FDA-Public Use
  Company Number: US-TEVA-2021-US-1896439

PATIENT
  Sex: Female
  Weight: 61.23 kg

DRUGS (2)
  1. ESTRADIOL TEVA [Suspect]
     Active Substance: ESTRADIOL
     Indication: MENOPAUSE
     Route: 067
     Dates: start: 202103
  2. ESTRADIOL TEVA [Suspect]
     Active Substance: ESTRADIOL
     Indication: BLOOD OESTROGEN DECREASED
     Route: 067

REACTIONS (3)
  - Uterine atrophy [Unknown]
  - Vaginal infection [Recovered/Resolved]
  - Vaginal haemorrhage [Recovering/Resolving]
